FAERS Safety Report 9338827 (Version 1)
Quarter: 2013Q2

REPORT INFORMATION
  Report Type: Spontaneous
  Country: US (occurrence: US)
  Receive Date: 20130610
  Receipt Date: 20130610
  Transmission Date: 20140414
  Serious: No
  Sender: FDA-Public Use
  Company Number: US-BAYER-2013-068660

PATIENT
  Age: 66 Year
  Sex: Female
  Weight: 74.83 kg

DRUGS (1)
  1. ALEVE TABLET [Suspect]
     Indication: BACK PAIN
     Dosage: 2 DF, Q4HR
     Route: 048
     Dates: start: 2013, end: 2013

REACTIONS (2)
  - Incorrect dose administered [None]
  - Incorrect drug administration duration [None]
